FAERS Safety Report 8159952-9 (Version None)
Quarter: 2012Q1

REPORT INFORMATION
  Report Type: 
  Country: None (occurrence: None)
  Receive Date: 20120223
  Receipt Date: 20120216
  Transmission Date: 20120608
  Serious: Yes (Death, Hospitalization)
  Sender: FDA-Public Use
  Company Number: US-GLAXOSMITHKLINE-A0826670A

PATIENT
  Age: 60 Year
  Sex: Female

DRUGS (4)
  1. AVANDIA [Suspect]
     Indication: DIABETES MELLITUS
     Route: 048
     Dates: end: 20070601
  2. ASPIRIN [Concomitant]
  3. CLOPIDOGREL [Concomitant]
  4. METOPROLOL [Concomitant]

REACTIONS (4)
  - DEATH [None]
  - MYOCARDIAL INFARCTION [None]
  - SHOCK [None]
  - RESPIRATORY FAILURE [None]
